FAERS Safety Report 8539037 (Version 3)
Quarter: 2012Q4

REPORT INFORMATION
  Report Type: Spontaneous
  Country: US (occurrence: None)
  Receive Date: 20120423
  Receipt Date: 20120814
  Transmission Date: 20130627
  Serious: Yes (Hospitalization, Other)
  Sender: FDA-Public Use
  Company Number: DKLU1078399

PATIENT
  Age: 45 Year
  Sex: Female

DRUGS (16)
  1. SABRIL [Suspect]
     Indication: COMPLEX PARTIAL SEIZURES
     Dosage: 1500 MG MILLIGRAM(S), 2 IN 1 D, ORAL
     Route: 048
     Dates: start: 20111011
  2. SABRIL [Suspect]
     Indication: EPILEPSY
     Dosage: 1500 MG MILLIGRAM(S), 2 IN 1 D, ORAL
     Route: 048
     Dates: start: 20111011
  3. KEPPRA [Concomitant]
  4. TRILEPTAL [Concomitant]
  5. NAPROXEN [Concomitant]
  6. FERROUS SULFATE [Concomitant]
  7. ZOLOFT [Concomitant]
  8. GLIMEPIRIDE [Concomitant]
  9. LEVOTHYROXINE SODIUM [Concomitant]
  10. TOPIRAMATE [Concomitant]
  11. LOVASTATIN [Concomitant]
  12. CALCIUM CARBONATE [Concomitant]
  13. CLINDAMYCIN [Concomitant]
  14. VITAMIN B6 [Concomitant]
  15. ACETAMINOPHEN WITH CODEINE (LENOLTEC WITH CODEINE NO [Concomitant]
  16. VITAMIN D [Concomitant]

REACTIONS (10)
  - Urinary tract infection [None]
  - Gait disturbance [None]
  - Mental status changes [None]
  - Feeling drunk [None]
  - Fall [None]
  - Impaired work ability [None]
  - Visual impairment [None]
  - Psychotic disorder [None]
  - Paranoia [None]
  - Dizziness [None]
